FAERS Safety Report 4413833-2 (Version None)
Quarter: 2004Q3

REPORT INFORMATION
  Report Type: 
  Country: None (occurrence: None)
  Receive Date: 20040728
  Receipt Date: 20040713
  Transmission Date: 20050211
  Serious: Yes (Life-Threatening)
  Sender: FDA-Public Use
  Company Number: 2004IC000376

PATIENT
  Age: 68 Year
  Sex: Male

DRUGS (3)
  1. FLUOROURACIL [Suspect]
     Indication: RECTAL CANCER
     Dosage: 750 MG; INTRAVENOUS
     Route: 042
     Dates: start: 20040609, end: 20040616
  2. LEUCOVORIN CALCIUM [Suspect]
     Indication: RECTAL CANCER
     Dosage: 375 MG; INTRAVENOUS
     Route: 042
     Dates: start: 20040609, end: 20040616
  3. NEUTROGIN [Concomitant]

REACTIONS (4)
  - ACUTE MYELOID LEUKAEMIA [None]
  - DISSEMINATED INTRAVASCULAR COAGULATION [None]
  - HAEMATOMA [None]
  - PANCYTOPENIA [None]
